FAERS Safety Report 6981964-9 (Version None)
Quarter: 2010Q3

REPORT INFORMATION
  Report Type: 
  Country: None (occurrence: None)
  Receive Date: 20100914
  Receipt Date: 20091030
  Transmission Date: 20110219
  Serious: No
  Sender: FDA-Public Use
  Company Number: US-PFIZER INC-2009291914

PATIENT
  Sex: Male
  Weight: 83.9 kg

DRUGS (4)
  1. LYRICA [Suspect]
     Indication: FIBROMYALGIA
     Dosage: 300 MG, 2X/DAY
     Route: 048
  2. DEXAMFETAMINE SULFATE [Concomitant]
     Indication: CHRONIC FATIGUE SYNDROME
     Dosage: 10 MG, 2X/DAY
     Route: 048
  3. OXYCODONE [Concomitant]
     Indication: FIBROMYALGIA
     Dosage: 5 MG, 2X/DAY
     Route: 048
  4. SELEGILINE [Concomitant]
     Indication: CHRONIC FATIGUE SYNDROME
     Dosage: 5 MG, 2X/DAY
     Route: 048

REACTIONS (3)
  - IMPAIRED HEALING [None]
  - SKIN DISCOLOURATION [None]
  - WEIGHT INCREASED [None]
